FAERS Safety Report 5632850-8 (Version None)
Quarter: 2008Q1

REPORT INFORMATION
  Report Type: 
  Country: None (occurrence: None)
  Receive Date: 20080221
  Receipt Date: 20080211
  Transmission Date: 20080703
  Serious: Yes (Death, Life-Threatening, Hospitalization)
  Sender: FDA-Public Use
  Company Number: SA-JNJFOC-20080202510

PATIENT
  Age: 62 Year
  Sex: Male

DRUGS (1)
  1. INFLIXIMAB [Suspect]
     Indication: RHEUMATOID ARTHRITIS
     Dosage: 4 DOSES
     Route: 042

REACTIONS (8)
  - ACUTE MYOCARDIAL INFARCTION [None]
  - BRONCHIECTASIS [None]
  - CACHEXIA [None]
  - DEHYDRATION [None]
  - HEPATIC LESION [None]
  - INTERSTITIAL LUNG DISEASE [None]
  - ORAL CANDIDIASIS [None]
  - RHEUMATOID LUNG [None]
